FAERS Safety Report 7912431-3 (Version None)
Quarter: 2011Q4

REPORT INFORMATION
  Report Type: 
  Country: None (occurrence: None)
  Receive Date: 20111114
  Receipt Date: 20111109
  Transmission Date: 20120403
  Serious: Yes (Other)
  Sender: FDA-Public Use
  Company Number: US-PFIZER INC-2011274897

PATIENT
  Sex: Female

DRUGS (4)
  1. LOVAZA [Concomitant]
     Indication: LOW DENSITY LIPOPROTEIN INCREASED
     Dosage: UNK
  2. LIPITOR [Suspect]
     Indication: LOW DENSITY LIPOPROTEIN INCREASED
     Dosage: 80 MG, 1X/DAY
     Route: 048
     Dates: start: 20110901, end: 20111109
  3. CALTRATE 600+D [Concomitant]
     Dosage: UNK
  4. ALLEGRA [Concomitant]
     Indication: SEASONAL ALLERGY
     Dosage: UNK

REACTIONS (5)
  - URTICARIA [None]
  - LIP SWELLING [None]
  - RASH [None]
  - PHARYNGEAL MASS [None]
  - HYPERSENSITIVITY [None]
